FAERS Safety Report 21113801 (Version 1)
Quarter: 2022Q3

REPORT INFORMATION
  Report Type: Spontaneous
  Country: US (occurrence: US)
  Receive Date: 20220721
  Receipt Date: 20220721
  Transmission Date: 20221027
  Serious: Yes (Death, Hospitalization, Other)
  Sender: FDA-Public Use
  Company Number: US-VERTEX PHARMACEUTICALS-2022-010590

PATIENT
  Age: 27 Year
  Sex: Female

DRUGS (2)
  1. TRIKAFTA [Suspect]
     Active Substance: ELEXACAFTOR\IVACAFTOR\TEZACAFTOR
     Indication: Cystic fibrosis
     Dosage: UNKNOWN FREQ
     Route: 048
     Dates: start: 202006, end: 202110
  2. FENTANYL [Suspect]
     Active Substance: FENTANYL
     Indication: Product used for unknown indication
     Route: 065

REACTIONS (16)
  - Drug-induced liver injury [Unknown]
  - Hepatic cirrhosis [Fatal]
  - Sepsis [Unknown]
  - Respiratory failure [Fatal]
  - Pneumonia [Unknown]
  - Hepatic steatosis [Recovered/Resolved]
  - Pyrexia [Unknown]
  - Cholelithiasis [Unknown]
  - Dyspnoea [Unknown]
  - Hypoxia [Unknown]
  - Splenomegaly [Unknown]
  - Hepatomegaly [Unknown]
  - Drug abuse [Unknown]
  - Abdominal pain [Unknown]
  - Alanine aminotransferase increased [Unknown]
  - Aspartate aminotransferase increased [Unknown]

NARRATIVE: CASE EVENT DATE: 20210101
